FAERS Safety Report 5925396-0 (Version None)
Quarter: 2008Q4

REPORT INFORMATION
  Report Type: 
  Country: None (occurrence: None)
  Receive Date: 20081020
  Receipt Date: 20081020
  Transmission Date: 20090506
  Serious: No
  Sender: FDA-Public Use
  Company Number: None

PATIENT
  Sex: Female
  Weight: 52.1637 kg

DRUGS (1)
  1. PHENYTOIN [Suspect]
     Indication: CONVULSION
     Dosage: 100 MG BID IV BOLUS
     Route: 040
     Dates: start: 20080921, end: 20080923

REACTIONS (2)
  - PURPLE GLOVE SYNDROME [None]
  - PYREXIA [None]
